FAERS Safety Report 10189733 (Version 1)
Quarter: 2014Q2

REPORT INFORMATION
  Report Type: Spontaneous
  Country: US (occurrence: US)
  Receive Date: 20140522
  Receipt Date: 20140522
  Transmission Date: 20141212
  Serious: Yes (Other)
  Sender: FDA-Public Use
  Company Number: US-SA-2013SA107121

PATIENT
  Age: 71 Year
  Sex: Male

DRUGS (4)
  1. LANTUS SOLOSTAR [Suspect]
     Indication: TYPE 2 DIABETES MELLITUS
     Dosage: DOSE:60 UNIT(S)
     Route: 051
  2. HUMALOG [Suspect]
     Route: 065
  3. CORTICOSTEROID NOS [Suspect]
     Route: 065
  4. SOLOSTAR [Concomitant]
     Indication: TYPE 2 DIABETES MELLITUS

REACTIONS (7)
  - Drug hypersensitivity [Not Recovered/Not Resolved]
  - Rash generalised [Not Recovered/Not Resolved]
  - Erythema [Unknown]
  - Pruritus [Not Recovered/Not Resolved]
  - Pain [Not Recovered/Not Resolved]
  - Blood glucose increased [Not Recovered/Not Resolved]
  - Eye disorder [Not Recovered/Not Resolved]
